FAERS Safety Report 14618358 (Version 1)
Quarter: 2018Q1

REPORT INFORMATION
  Report Type: Spontaneous
  Country: FR (occurrence: FR)
  Receive Date: 20180309
  Receipt Date: 20180309
  Transmission Date: 20180509
  Serious: Yes (Other)
  Sender: FDA-Public Use
  Company Number: FR-GLAXOSMITHKLINE-FR2018GSK039259

PATIENT
  Age: 3 Decade
  Sex: Female

DRUGS (1)
  1. NIQUITIN [Suspect]
     Active Substance: NICOTINE
     Indication: PRODUCT USED FOR UNKNOWN INDICATION
     Dosage: UNK (21 MG/24 HEURES)
     Route: 062

REACTIONS (6)
  - Hypersensitivity [Unknown]
  - Peripheral swelling [Unknown]
  - Dry skin [Unknown]
  - Application site erythema [Unknown]
  - Lack of administration site rotation [Unknown]
  - Dyspnoea [Unknown]
